FAERS Safety Report 9876491 (Version 2)
Quarter: 2014Q1

REPORT INFORMATION
  Report Type: Other
  Country: US (occurrence: US)
  Receive Date: 20140206
  Receipt Date: 20140206
  Transmission Date: 20141002
  Serious: No
  Sender: FDA-Public Use
  Company Number: US-ACORDA-ACO_37004_2013

PATIENT
  Sex: Female

DRUGS (5)
  1. AMPYRA [Suspect]
     Indication: ATAXIA
     Dosage: 10 MG, BID
     Route: 048
     Dates: start: 201301, end: 201306
  2. AMPYRA [Suspect]
     Indication: MUSCLE SPASTICITY
  3. AMPYRA [Suspect]
     Indication: MULTIPLE SCLEROSIS
  4. AVONEX [Concomitant]
     Indication: PRODUCT USED FOR UNKNOWN INDICATION
     Dosage: 30 ?G, UNK
  5. GABAPENTIN [Concomitant]
     Indication: PRODUCT USED FOR UNKNOWN INDICATION
     Dosage: 900 MG, QD
     Route: 048

REACTIONS (1)
  - Asthenia [Unknown]
